FAERS Safety Report 12318669 (Version 1)
Quarter: 2016Q2

REPORT INFORMATION
  Report Type: Spontaneous
  Country: US (occurrence: US)
  Receive Date: 20160429
  Receipt Date: 20160429
  Transmission Date: 20160815
  Serious: No
  Sender: FDA-Public Use
  Company Number: US-TORRENT-00001164

PATIENT
  Age: 50 Year
  Sex: Female

DRUGS (1)
  1. ZOLPIDEM TARTRATE TABLET [Suspect]
     Active Substance: ZOLPIDEM TARTRATE
     Indication: ANXIETY
     Dosage: DAILY
     Route: 048

REACTIONS (1)
  - Drug withdrawal syndrome [Unknown]
